FAERS Safety Report 10401122 (Version 1)
Quarter: 2014Q3

REPORT INFORMATION
  Report Type: Report from Study
  Country: US (occurrence: US)
  Receive Date: 20140822
  Receipt Date: 20140822
  Transmission Date: 20150326
  Serious: Yes (Other)
  Sender: FDA-Public Use
  Company Number: US-ROCHE-1450613

PATIENT
  Age: 11 Year
  Sex: Female

DRUGS (3)
  1. PHOS-NAK [Concomitant]
     Dosage: 1.25 PACKETS DAILY
     Route: 065
  2. ROCALTROL [Concomitant]
     Active Substance: CALCITRIOL
     Route: 065
  3. NUTROPIN AQ [Suspect]
     Active Substance: SOMATROPIN
     Indication: GROWTH HORMONE DEFICIENCY
     Dosage: NIGHTLY
     Route: 058

REACTIONS (6)
  - Knee deformity [Unknown]
  - Growth retardation [Unknown]
  - Weight increased [Unknown]
  - Hypophosphataemic rickets [Unknown]
  - Epiphyseal injury [Unknown]
  - Blood phosphorus decreased [Unknown]

NARRATIVE: CASE EVENT DATE: 201308
